FAERS Safety Report 24453549 (Version 2)
Quarter: 2024Q4

REPORT INFORMATION
  Report Type: Report from Study
  Country: US (occurrence: US)
  Receive Date: 20241017
  Receipt Date: 20241018
  Transmission Date: 20250115
  Serious: No
  Sender: ROCHE
  Company Number: US-ROCHE-3162151

PATIENT
  Age: 51 Year
  Sex: Male

DRUGS (8)
  1. RITUXAN [Suspect]
     Active Substance: RITUXIMAB
     Indication: Polymyositis
     Dosage: DAYS 1 AND 15 EVERY 6 MONTHS
     Route: 041
     Dates: start: 20230929
  2. RITUXAN [Suspect]
     Active Substance: RITUXIMAB
     Route: 041
     Dates: start: 20211101
  3. CELLCEPT [Suspect]
     Active Substance: MYCOPHENOLATE MOFETIL
     Indication: Product used for unknown indication
     Route: 048
  4. AMLODIPINE BESYLATE [Concomitant]
     Active Substance: AMLODIPINE BESYLATE
  5. ATIVAN [Concomitant]
     Active Substance: LORAZEPAM
  6. FAMOTIDINE [Concomitant]
     Active Substance: FAMOTIDINE
  7. LISINOPRIL [Concomitant]
     Active Substance: LISINOPRIL
  8. TYLENOL [Concomitant]
     Active Substance: ACETAMINOPHEN

REACTIONS (2)
  - Off label use [Unknown]
  - No adverse event [Unknown]
